FAERS Safety Report 7051536-9 (Version None)
Quarter: 2010Q4

REPORT INFORMATION
  Report Type: 
  Country: None (occurrence: None)
  Receive Date: 20101014
  Receipt Date: 20101005
  Transmission Date: 20110411
  Serious: Yes (Other)
  Sender: FDA-Public Use
  Company Number: DSA_42594_2010

PATIENT
  Age: 62 Year
  Sex: Female

DRUGS (8)
  1. CARDIZEM [Suspect]
     Indication: PRODUCT USED FOR UNKNOWN INDICATION
     Dosage: (180 MG BID ORAL)
     Route: 048
     Dates: start: 20090601
  2. ASPIRIN [Concomitant]
  3. LIPITOR [Concomitant]
  4. LOSEC /00661201/ [Concomitant]
  5. ETIDRONATE DISODIUM [Concomitant]
  6. SPIRIVA [Concomitant]
  7. VENTOLIN [Concomitant]
  8. FLIXOTIDE [Concomitant]

REACTIONS (5)
  - DECREASED APPETITE [None]
  - FATIGUE [None]
  - HYPOTENSION [None]
  - OVARIAN CYST [None]
  - WEIGHT DECREASED [None]
